FAERS Safety Report 6662444-7 (Version None)
Quarter: 2010Q1

REPORT INFORMATION
  Report Type: 
  Country: None (occurrence: None)
  Receive Date: 20100329
  Receipt Date: 20100319
  Transmission Date: 20100710
  Serious: Yes (Other)
  Sender: FDA-Public Use
  Company Number: SPV1-2010-00516

PATIENT
  Age: 10 Year
  Sex: Male

DRUGS (1)
  1. INTUNIV [Suspect]
     Indication: DRUG USE FOR UNKNOWN INDICATION
     Dosage: 1 MG, 1X/DAY: QD, ORAL
     Route: 048
     Dates: start: 20100201

REACTIONS (1)
  - SYNCOPE [None]
